FAERS Safety Report 9522270 (Version 1)
Quarter: 2013Q3

REPORT INFORMATION
  Report Type: Spontaneous
  Country: FR (occurrence: FR)
  Receive Date: 20130913
  Receipt Date: 20130913
  Transmission Date: 20140515
  Serious: Yes (Other)
  Sender: FDA-Public Use
  Company Number: PHHY2013FR100985

PATIENT
  Age: 64 Year
  Sex: Female

DRUGS (4)
  1. ACLASTA [Suspect]
     Dosage: UNK UKN, UNK
     Route: 042
     Dates: start: 20110303
  2. LIVIAL [Concomitant]
     Dosage: 2.5 MG, QD
     Route: 048
     Dates: start: 2003
  3. ESBERIVEN FORT [Concomitant]
     Dosage: UNK UKN, BID
     Route: 048
     Dates: start: 2005
  4. MONOTILDIEM [Concomitant]
     Dosage: 300 MG, QD
     Route: 048
     Dates: start: 2001

REACTIONS (3)
  - Gastrointestinal disorder [Recovered/Resolved]
  - Hepatic enzyme increased [Recovered/Resolved]
  - Osteonecrosis of jaw [Recovering/Resolving]
